FAERS Safety Report 8169250-5 (Version None)
Quarter: 2012Q1

REPORT INFORMATION
  Report Type: 
  Country: None (occurrence: None)
  Receive Date: 20120228
  Receipt Date: 20120217
  Transmission Date: 20120608
  Serious: Yes (Other)
  Sender: FDA-Public Use
  Company Number: US-ASTRAZENECA-2011SE42546

PATIENT
  Age: 58 Year
  Sex: Female
  Weight: 93 kg

DRUGS (3)
  1. SEROQUEL [Suspect]
     Indication: BIPOLAR DISORDER
     Route: 048
  2. CYMBALTA [Concomitant]
  3. DEPAKOTE [Concomitant]

REACTIONS (2)
  - ROAD TRAFFIC ACCIDENT [None]
  - DEAFNESS [None]
